FAERS Safety Report 8312985-1 (Version None)
Quarter: 2012Q2

REPORT INFORMATION
  Report Type: 
  Country: None (occurrence: None)
  Receive Date: 20120426
  Receipt Date: 20120327
  Transmission Date: 20120825
  Serious: Yes (Hospitalization)
  Sender: FDA-Public Use
  Company Number: US-MYLANLABS-2012S1006549

PATIENT
  Age: 59 Year
  Sex: Male
  Weight: 92.99 kg

DRUGS (6)
  1. VORICONAZOLE [Suspect]
     Indication: ASPERGILLOSIS
     Route: 048
     Dates: start: 20120201
  2. VORICONAZOLE [Suspect]
     Indication: RESPIRATORY TRACT INFECTION FUNGAL
     Route: 048
     Dates: start: 20120201
  3. LEVOFLOXACIN [Concomitant]
     Indication: LUNG DISORDER
     Dosage: TIMES 5 DAYS
     Route: 048
     Dates: start: 20120301
  4. HUMALOG [Concomitant]
     Indication: DIABETES MELLITUS
  5. PREDNISONE TAB [Concomitant]
     Indication: LUNG DISORDER
     Dosage: TAPERING DOSES
     Route: 048
     Dates: start: 20111201
  6. LANTUS [Concomitant]
     Indication: DIABETES MELLITUS

REACTIONS (2)
  - ATRIAL FIBRILLATION [None]
  - DYSPNOEA [None]
